FAERS Safety Report 10538886 (Version 2)
Quarter: 2014Q4

REPORT INFORMATION
  Report Type: Spontaneous
  Country: FR (occurrence: FR)
  Receive Date: 20141023
  Receipt Date: 20141023
  Transmission Date: 20150529
  Serious: Yes (Disabling, Congenital Anomaly)
  Sender: FDA-Public Use
  Company Number: FR-ABBVIE-10P-056-0639995-00

PATIENT
  Sex: Female

DRUGS (1)
  1. DEPAKENE [Suspect]
     Active Substance: VALPROIC ACID
     Indication: MATERNAL EXPOSURE TIMING UNSPECIFIED
     Route: 064

REACTIONS (7)
  - Microphthalmos [Unknown]
  - Blindness congenital [Unknown]
  - Foetal exposure during pregnancy [Unknown]
  - Limb asymmetry [Unknown]
  - Camptodactyly congenital [Unknown]
  - Congenital hand malformation [Unknown]
  - Arachnodactyly [Unknown]

NARRATIVE: CASE EVENT DATE: 20021124
